FAERS Safety Report 7237928-3 (Version None)
Quarter: 2011Q1

REPORT INFORMATION
  Report Type: 
  Country: None (occurrence: None)
  Receive Date: 20110121
  Receipt Date: 20110112
  Transmission Date: 20110831
  Serious: Yes (Death, Other)
  Sender: FDA-Public Use
  Company Number: GR-JNJFOC-20101208682

PATIENT
  Sex: Female

DRUGS (4)
  1. CYCLOPHOSPHAMIDE [Suspect]
     Indication: MULTIPLE MYELOMA
     Route: 065
  2. DOXORUBICIN HYDROCHLORIDE [Suspect]
     Indication: MULTIPLE MYELOMA
     Route: 042
  3. DEXAMETHASONE [Suspect]
     Indication: MULTIPLE MYELOMA
     Route: 065
  4. VELCADE [Suspect]
     Indication: MULTIPLE MYELOMA
     Route: 042

REACTIONS (2)
  - SEPTIC SHOCK [None]
  - MULTIPLE MYELOMA [None]
